FAERS Safety Report 15033075 (Version 1)
Quarter: 2018Q3

REPORT INFORMATION
  Report Type: Spontaneous
  Country: US (occurrence: US)
  Receive Date: 20180619
  Receipt Date: 20180619
  Transmission Date: 20181010
  Serious: No
  Sender: FDA-Public Use
  Company Number: US-AVADEL SPECIALTY PHARMACEUTICALS, LLC-2018AVA00052

PATIENT
  Age: 87 Year
  Sex: Male

DRUGS (1)
  1. NOCTIVA [Suspect]
     Active Substance: DESMOPRESSIN ACETATE
     Indication: NOCTURIA
     Dosage: 0.83 ?G, UNK
     Route: 045

REACTIONS (7)
  - Rhinalgia [Recovered/Resolved]
  - Agitation [Recovered/Resolved]
  - Instillation site pain [None]
  - Sinusitis [Recovered/Resolved]
  - Product quality issue [None]
  - Instillation site irritation [None]
  - Anxiety [Recovered/Resolved]
